FAERS Safety Report 8485445-5 (Version None)
Quarter: 2012Q3

REPORT INFORMATION
  Report Type: 
  Country: None (occurrence: None)
  Receive Date: 20120703
  Receipt Date: 20120618
  Transmission Date: 20120928
  Serious: Yes (Other)
  Sender: FDA-Public Use
  Company Number: US-ROCHE-1083542

PATIENT
  Age: 43 Year
  Sex: Male

DRUGS (5)
  1. PREDNISONE TAB [Suspect]
     Indication: IMMUNOSUPPRESSION
     Dosage: 60 MG TAPERING TO 0 OVER 1 MONTH
     Route: 048
  2. METHYLPREDNISOLONE [Suspect]
     Indication: IMMUNOSUPPRESSION
     Dosage: PRIOR TO SURGERY
     Route: 042
  3. TACROLIMUS [Suspect]
     Indication: IMMUNOSUPPRESSION
     Dosage: 4 TO 8 NG/ML
     Route: 048
  4. BASILIXIMAB [Suspect]
     Indication: IMMUNOSUPPRESSION
     Dosage: 2 DOSES
     Route: 042
  5. CELLCEPT [Suspect]
     Indication: IMMUNOSUPPRESSION
     Route: 048

REACTIONS (1)
  - WOUND DEHISCENCE [None]
